FAERS Safety Report 21305679 (Version 1)
Quarter: 2022Q3

REPORT INFORMATION
  Report Type: Spontaneous
  Country: CN (occurrence: CN)
  Receive Date: 20220908
  Receipt Date: 20220908
  Transmission Date: 20221027
  Serious: Yes (Hospitalization, Other)
  Sender: FDA-Public Use
  Company Number: None

PATIENT
  Age: 52 Year
  Sex: Female
  Weight: 63 kg

DRUGS (6)
  1. CYCLOPHOSPHAMIDE [Suspect]
     Active Substance: CYCLOPHOSPHAMIDE
     Indication: Diffuse large B-cell lymphoma stage II
     Dosage: DOSAGE FORM- INJECTION, 1.2 G, QD (DILUTED WITH 0.9% SODIUM CHLORIDE 500 ML)
     Route: 041
     Dates: start: 20220813, end: 20220813
  2. SODIUM CHLORIDE [Suspect]
     Active Substance: SODIUM CHLORIDE
     Indication: Medication dilution
     Dosage: DOSAGE FORM- INJECTION, 500 ML, QD (DILUTED WITH CYCLOPHOSPHAMIDE 1.2 G)
     Route: 041
     Dates: start: 20220813, end: 20220813
  3. SODIUM CHLORIDE [Suspect]
     Active Substance: SODIUM CHLORIDE
     Dosage: DOSAGE FORM- INJECTION, 100 ML, QD (DILUTED WITH VINCRISTINE SULFATE 2 MG)
     Route: 041
     Dates: start: 20220813, end: 20220813
  4. DEXTROSE MONOHYDRATE [Suspect]
     Active Substance: DEXTROSE MONOHYDRATE
     Indication: Medication dilution
     Dosage: DOSAGE FORM- INJECTION, 250 ML, QD (DILUTED WITH PIRARUBICIN HYDROCHLORIDE 80 MG)
     Route: 041
     Dates: start: 20220813, end: 20220813
  5. PIRARUBICIN HYDROCHLORIDE [Suspect]
     Active Substance: PIRARUBICIN HYDROCHLORIDE
     Indication: Diffuse large B-cell lymphoma stage II
     Dosage: 80 MG, QD (DILUTED WITH 5% GLUCOSE 250 ML)
     Route: 041
     Dates: start: 20220813, end: 20220813
  6. VINCRISTINE SULFATE [Suspect]
     Active Substance: VINCRISTINE SULFATE
     Indication: Diffuse large B-cell lymphoma stage II
     Dosage: 2 MG, QD (DILUTED WITH 0.9% SODIUM CHLORIDE 100 ML)
     Route: 041
     Dates: start: 20220813, end: 20220813

REACTIONS (2)
  - White blood cell count decreased [Recovering/Resolving]
  - Neutrophil count decreased [Recovering/Resolving]

NARRATIVE: CASE EVENT DATE: 20220823
